FAERS Safety Report 8799623 (Version 1)
Quarter: 2012Q4

REPORT INFORMATION
  Report Type: Spontaneous
  Country: US (occurrence: None)
  Receive Date: 20120918
  Receipt Date: 20120918
  Transmission Date: 20130627
  Serious: Yes (Hospitalization)
  Sender: FDA-Public Use
  Company Number: None

PATIENT
  Age: 58 Year
  Sex: Male
  Weight: 85.28 kg

DRUGS (1)
  1. RIBASPHERE [Suspect]
     Dosage: Weekly subcutaneous injection
     Route: 058

REACTIONS (2)
  - Spleen disorder [None]
  - Thrombosis [None]
